FAERS Safety Report 7257263-7 (Version None)
Quarter: 2011Q1

REPORT INFORMATION
  Report Type: 
  Country: None (occurrence: None)
  Receive Date: 20110129
  Receipt Date: 20100626
  Transmission Date: 20110831
  Serious: No
  Sender: FDA-Public Use
  Company Number: US-ABBOTT-10P-163-0654167-00

PATIENT
  Age: 22 Year
  Sex: Female

DRUGS (2)
  1. BIRTH CONTROL PILL [Concomitant]
     Indication: CONTRACEPTION
  2. HUMIRA [Suspect]
     Indication: CROHN'S DISEASE

REACTIONS (2)
  - PYREXIA [None]
  - VOMITING [None]
